FAERS Safety Report 11342701 (Version 2)
Quarter: 2015Q3

REPORT INFORMATION
  Report Type: Spontaneous
  Country: US (occurrence: US)
  Receive Date: 20150805
  Receipt Date: 20150807
  Transmission Date: 20151125
  Serious: Yes (Other)
  Sender: FDA-Public Use
  Company Number: US-REGENERON PHARMACEUTICALS, INC.-2015-11886

PATIENT

DRUGS (2)
  1. EYLEA [Suspect]
     Active Substance: AFLIBERCEPT
     Dosage: UNK, 4TH INJECTION 2 MONTHS AFTER THE THIRD INJECTION
     Route: 031
     Dates: start: 20150730, end: 20150730
  2. EYLEA [Suspect]
     Active Substance: AFLIBERCEPT
     Indication: NEOVASCULAR AGE-RELATED MACULAR DEGENERATION
     Dosage: UNK, EVERY MONTH FOR THE FIRST 3 MONTHS
     Route: 031
     Dates: start: 201502

REACTIONS (3)
  - Dry eye [Unknown]
  - Eye haemorrhage [Unknown]
  - Eye oedema [Unknown]

NARRATIVE: CASE EVENT DATE: 201505
